FAERS Safety Report 15631232 (Version 2)
Quarter: 2018Q4

REPORT INFORMATION
  Report Type: Spontaneous
  Country: JP (occurrence: JP)
  Receive Date: 20181119
  Receipt Date: 20181224
  Transmission Date: 20190205
  Serious: Yes (Death, Life-Threatening, Other)
  Sender: FDA-Public Use
  Company Number: JP-ROCHE-2217108

PATIENT
  Age: 70 Year
  Sex: Female

DRUGS (2)
  1. TEMODAL [Concomitant]
     Active Substance: TEMOZOLOMIDE
     Indication: MALIGNANT GLIOMA
     Dosage: DOSAGE IS UNCERTAIN.
     Route: 065
     Dates: start: 20131116
  2. AVASTIN [Suspect]
     Active Substance: BEVACIZUMAB
     Indication: MALIGNANT GLIOMA
     Route: 041
     Dates: start: 20131116, end: 20171225

REACTIONS (3)
  - Gallbladder rupture [Recovering/Resolving]
  - Cholecystitis [Unknown]
  - Malignant glioma [Fatal]

NARRATIVE: CASE EVENT DATE: 201709
